FAERS Safety Report 4325852-5 (Version None)
Quarter: 2004Q1

REPORT INFORMATION
  Report Type: 
  Country: None (occurrence: None)
  Receive Date: 20040323
  Receipt Date: 20040309
  Transmission Date: 20041129
  Serious: Yes (Hospitalization)
  Sender: FDA-Public Use
  Company Number: 04-111

PATIENT
  Age: 52 Year
  Sex: Male

DRUGS (1)
  1. PROPOFOL INJECTABLE EMULSION [Suspect]
     Indication: ANAESTHESIA
     Dosage: 125 MG IV
     Route: 042
     Dates: start: 20040224

REACTIONS (1)
  - PULMONARY EMBOLISM [None]
